FAERS Safety Report 19469529 (Version 1)
Quarter: 2021Q2

REPORT INFORMATION
  Report Type: Spontaneous
  Country: IN (occurrence: IN)
  Receive Date: 20210628
  Receipt Date: 20210628
  Transmission Date: 20210717
  Serious: Yes (Death, Other)
  Sender: FDA-Public Use
  Company Number: IN-UCBSA-2021030438

PATIENT
  Age: 8 Year
  Sex: Male

DRUGS (7)
  1. LEVETIRACETAM. [Suspect]
     Active Substance: LEVETIRACETAM
     Indication: ACUTE DISSEMINATED ENCEPHALOMYELITIS
     Dosage: UNKNOWN DOSE
  2. MIDAZOLAM. [Concomitant]
     Active Substance: MIDAZOLAM
     Indication: ACUTE DISSEMINATED ENCEPHALOMYELITIS
     Dosage: UNKNOWN DOSE
  3. MANNITOL. [Concomitant]
     Active Substance: MANNITOL
     Indication: ACUTE DISSEMINATED ENCEPHALOMYELITIS
     Dosage: UNKNOWN DOSE
  4. PHENOBARBITONE [PHENOBARBITAL] [Concomitant]
     Active Substance: PHENOBARBITAL
     Indication: ACUTE DISSEMINATED ENCEPHALOMYELITIS
     Dosage: UNKNOWN DOSE
  5. PHENYTOIN. [Concomitant]
     Active Substance: PHENYTOIN
     Indication: ACUTE DISSEMINATED ENCEPHALOMYELITIS
     Dosage: UNKNOWN DOSE
  6. ISOPRINOSINE [Concomitant]
     Active Substance: INOSINE PRANOBEX
     Indication: PRODUCT USED FOR UNKNOWN INDICATION
     Dosage: UNKNOWN DOSE
  7. METHYLPREDNISOLONE. [Concomitant]
     Active Substance: METHYLPREDNISOLONE
     Indication: ACUTE DISSEMINATED ENCEPHALOMYELITIS
     Dosage: 30 MG/KG/DAY

REACTIONS (4)
  - Apallic syndrome [Unknown]
  - Product use in unapproved indication [Unknown]
  - Subacute sclerosing panencephalitis [Fatal]
  - Neurological decompensation [Unknown]
